FAERS Safety Report 8380777-3 (Version None)
Quarter: 2012Q2

REPORT INFORMATION
  Report Type: 
  Country: None (occurrence: None)
  Receive Date: 20120523
  Receipt Date: 20120510
  Transmission Date: 20120825
  Serious: Yes (Other)
  Sender: FDA-Public Use
  Company Number: GB-JNJFOC-20120510212

PATIENT
  Age: 43 Year
  Sex: Male

DRUGS (5)
  1. SULPIRID [Concomitant]
     Route: 065
  2. CODEINE PHOSPHATE AND ACETAMINOPHEN [Suspect]
     Indication: BACK PAIN
     Route: 065
  3. IBUPROFEN [Interacting]
     Indication: BACK PAIN
     Route: 065
  4. CLOZAPINE [Interacting]
     Indication: PRODUCT USED FOR UNKNOWN INDICATION
     Route: 048
     Dates: start: 20050701, end: 20120425
  5. LAMOTRIGINE [Concomitant]
     Route: 065

REACTIONS (4)
  - WHITE BLOOD CELL COUNT DECREASED [None]
  - NEUTROPENIA [None]
  - BACK PAIN [None]
  - DRUG INTERACTION [None]
